FAERS Safety Report 25287163 (Version 1)
Quarter: 2025Q2

REPORT INFORMATION
  Report Type: Spontaneous
  Country: US (occurrence: US)
  Receive Date: 20250509
  Receipt Date: 20250509
  Transmission Date: 20250717
  Serious: No
  Sender: Steriscience PTE
  Company Number: US-STERISCIENCE B.V.-2024-ST-001960

PATIENT
  Sex: Female

DRUGS (4)
  1. AMPICILLIN [Suspect]
     Active Substance: AMPICILLIN
     Indication: Preterm premature rupture of membranes
     Dosage: 2 GRAM, Q6H
  2. AMOXICILLIN [Suspect]
     Active Substance: AMOXICILLIN
     Indication: Preterm premature rupture of membranes
     Route: 048
  3. AZITHROMYCIN [Suspect]
     Active Substance: AZITHROMYCIN
     Indication: Preterm premature rupture of membranes
  4. AZITHROMYCIN [Suspect]
     Active Substance: AZITHROMYCIN
     Route: 048

REACTIONS (2)
  - Off label use [Unknown]
  - Maternal exposure during pregnancy [Unknown]
